FAERS Safety Report 6878366-2 (Version None)
Quarter: 2010Q3

REPORT INFORMATION
  Report Type: 
  Country: None (occurrence: None)
  Receive Date: 20100728
  Receipt Date: 20100719
  Transmission Date: 20110219
  Serious: Yes (Other)
  Sender: FDA-Public Use
  Company Number: US-JNJFOC-20100706718

PATIENT
  Sex: Female

DRUGS (1)
  1. TOPAMAX [Suspect]
     Indication: MIGRAINE
     Dosage: AT BEDTIME
     Route: 048

REACTIONS (3)
  - COELIAC DISEASE [None]
  - HEADACHE [None]
  - PRODUCT QUALITY ISSUE [None]
